FAERS Safety Report 17964911 (Version 1)
Quarter: 2020Q2

REPORT INFORMATION
  Report Type: Spontaneous
  Country: US (occurrence: US)
  Receive Date: 20200630
  Receipt Date: 20200630
  Transmission Date: 20200714
  Serious: No
  Sender: FDA-Public Use
  Company Number: US-ASTRAZENECA-2020SE82483

PATIENT
  Sex: Male
  Weight: 86.2 kg

DRUGS (3)
  1. VITAMINS [Concomitant]
     Active Substance: VITAMINS
  2. PROBIOTICS [Concomitant]
     Active Substance: PROBIOTICS NOS
  3. FASENRA [Suspect]
     Active Substance: BENRALIZUMAB
     Indication: ASTHMA
     Route: 058
     Dates: start: 2018

REACTIONS (2)
  - Pain in extremity [Unknown]
  - Arthralgia [Unknown]
